FAERS Safety Report 6936630-2 (Version None)
Quarter: 2010Q3

REPORT INFORMATION
  Report Type: 
  Country: None (occurrence: None)
  Receive Date: 20100818
  Receipt Date: 20100804
  Transmission Date: 20110219
  Serious: Yes (Hospitalization, Other)
  Sender: FDA-Public Use
  Company Number: 232481J10USA

PATIENT
  Age: 50 Year
  Sex: Female
  Weight: 114 kg

DRUGS (10)
  1. REBIF [Suspect]
     Indication: RELAPSING-REMITTING MULTIPLE SCLEROSIS
     Dosage: 44 MCG, 3 IN 1 WK, SUBCUTANEOUS
     Route: 058
     Dates: start: 20040202
  2. GABAPENTIN [Concomitant]
  3. LOVASTATIN [Concomitant]
  4. DILTIAZEM [Concomitant]
  5. ASPIRIN [Concomitant]
  6. GLUCOSAMINE (GLUCOSAMINE) [Concomitant]
  7. VITAMIN D [Concomitant]
  8. FLAX SEE OIL (LINUM USITATISSIMUM SEED OIL) [Concomitant]
  9. CALCIUM (CALCIUM LACTATE) [Concomitant]
  10. MULTIVITAMIN [Concomitant]

REACTIONS (7)
  - ATRIAL FIBRILLATION [None]
  - DIZZINESS [None]
  - LEFT ATRIAL DILATATION [None]
  - PALPITATIONS [None]
  - RESTLESS LEGS SYNDROME [None]
  - RIGHT ATRIAL DILATATION [None]
  - SLEEP APNOEA SYNDROME [None]
